FAERS Safety Report 17004612 (Version 6)
Quarter: 2022Q1

REPORT INFORMATION
  Report Type: Spontaneous
  Country: US (occurrence: US)
  Receive Date: 20191107
  Receipt Date: 20220316
  Transmission Date: 20220423
  Serious: Yes (Other)
  Sender: FDA-Public Use
  Company Number: US-PFIZER INC-2019122455

PATIENT
  Age: 58 Year
  Sex: Male
  Weight: 84.4 kg

DRUGS (3)
  1. LYRICA [Suspect]
     Active Substance: PREGABALIN
     Indication: Diabetic neuropathy
     Dosage: 300 MG, 3X/DAY (THREE TIMES A DAY)
     Route: 048
     Dates: start: 2016
  2. LYRICA [Suspect]
     Active Substance: PREGABALIN
     Dosage: 300 MG, 2X/DAY (TWICE A DAY)
  3. LYRICA [Suspect]
     Active Substance: PREGABALIN
     Dosage: 600 MG, DAILY [TWO PILLS A DAY]
     Route: 048

REACTIONS (4)
  - Drug dependence [Unknown]
  - Prescribed overdose [Unknown]
  - Intentional product use issue [Unknown]
  - Illness [Unknown]

NARRATIVE: CASE EVENT DATE: 20160101
